FAERS Safety Report 7000327-3 (Version None)
Quarter: 2010Q3

REPORT INFORMATION
  Report Type: 
  Country: None (occurrence: None)
  Receive Date: 20100920
  Receipt Date: 20100909
  Transmission Date: 20110219
  Serious: Yes (Other)
  Sender: FDA-Public Use
  Company Number: ZA-JNJFOC-20100806626

PATIENT
  Sex: Female

DRUGS (3)
  1. SINUMAX [Suspect]
     Indication: COUGH
     Route: 065
  2. SINUMAX [Suspect]
     Indication: SNEEZING
     Route: 065
  3. SINUMAX [Suspect]
     Indication: RHINORRHOEA
     Route: 065

REACTIONS (3)
  - ANOSMIA [None]
  - DRUG INEFFECTIVE [None]
  - DRY MOUTH [None]
